FAERS Safety Report 24451065 (Version 1)
Quarter: 2024Q4

REPORT INFORMATION
  Report Type: Spontaneous
  Country: PT (occurrence: PT)
  Receive Date: 20241017
  Receipt Date: 20241017
  Transmission Date: 20250114
  Serious: Yes (Hospitalization, Other)
  Sender: BRISTOL-MYERS SQUIBB COMPANY
  Company Number: None

PATIENT
  Age: 58 Year
  Sex: Male

DRUGS (9)
  1. YERVOY [Suspect]
     Active Substance: IPILIMUMAB
     Indication: Clear cell renal cell carcinoma
     Dosage: C1 (INDUCTION PHASE) 79 MG
     Route: 042
     Dates: start: 20240805, end: 20240805
  2. YERVOY [Suspect]
     Active Substance: IPILIMUMAB
     Dosage: C1 (INDUCTION PHASE) 79 MG
     Route: 042
     Dates: start: 20240805, end: 20240805
  3. YERVOY [Suspect]
     Active Substance: IPILIMUMAB
     Dosage: C2 (INDUCTION PHASE) 79 MG
     Route: 042
     Dates: start: 20240826, end: 20240826
  4. OPDIVO [Suspect]
     Active Substance: NIVOLUMAB
     Indication: Clear cell renal cell carcinoma
     Dosage: C1 (INDUCTION PHASE) 237 MG
     Route: 042
     Dates: start: 20240805, end: 20240805
  5. OPDIVO [Suspect]
     Active Substance: NIVOLUMAB
     Dosage: C2 (INDUCTION PHASE) : 237 MG
     Route: 042
     Dates: start: 20240826, end: 20240826
  6. PANTOPRAZOLE [Concomitant]
     Active Substance: PANTOPRAZOLE
     Indication: Product used for unknown indication
     Dosage: 1 TABLET ON AN EMPTY STOMACH
     Route: 048
  7. MYCOSTATIN [Concomitant]
     Active Substance: NYSTATIN
     Indication: Product used for unknown indication
     Dosage: 1 PIPETTE 3XDAILY
     Route: 048
  8. IMODIUM [Concomitant]
     Active Substance: LOPERAMIDE HYDROCHLORIDE
     Indication: Product used for unknown indication
     Dosage: 1 CP IN SOS (MAXIMUM 6)
     Route: 048
  9. SULFAMETHOXAZOLE\TRIMETHOPRIM [Concomitant]
     Active Substance: SULFAMETHOXAZOLE\TRIMETHOPRIM
     Indication: Product used for unknown indication
     Dosage: 1 CP 2ND TO 4TH AND 6TH
     Route: 048

REACTIONS (2)
  - Rectal tenesmus [Recovering/Resolving]
  - Immune-mediated enterocolitis [Recovering/Resolving]

NARRATIVE: CASE EVENT DATE: 20240905
